FAERS Safety Report 9241602 (Version 1)
Quarter: 2013Q2

REPORT INFORMATION
  Report Type: Spontaneous
  Country: BR (occurrence: BR)
  Receive Date: 20130419
  Receipt Date: 20130419
  Transmission Date: 20140414
  Serious: Yes (Other)
  Sender: FDA-Public Use
  Company Number: PHHY2013BR037493

PATIENT
  Age: 82 Year
  Sex: Male

DRUGS (1)
  1. DIOCOMB SI [Suspect]

REACTIONS (4)
  - Arteriosclerosis [Unknown]
  - Dementia [Unknown]
  - Respiratory tract infection [Unknown]
  - Ischaemia [Unknown]
